FAERS Safety Report 21435743 (Version 1)
Quarter: 2022Q4

REPORT INFORMATION
  Report Type: Report from Study
  Country: EG (occurrence: EG)
  Receive Date: 20221010
  Receipt Date: 20221010
  Transmission Date: 20230113
  Serious: Yes (Other)
  Sender: FDA-Public Use
  Company Number: EG-NOVARTISPH-NVSC2022EG225643

PATIENT
  Sex: Female

DRUGS (7)
  1. COSENTYX [Suspect]
     Active Substance: SECUKINUMAB
     Indication: Psoriasis
     Dosage: 2 DOSAGE FORM, QMO (FOR 4 MONTHS ONLY)
     Route: 065
     Dates: start: 2019, end: 2019
  2. COSENTYX [Suspect]
     Active Substance: SECUKINUMAB
     Dosage: UNK ( 6 DOSES OF COSENTYX FOR 3 MONTHS)
     Route: 058
     Dates: start: 202002, end: 202005
  3. COSENTYX [Suspect]
     Active Substance: SECUKINUMAB
     Dosage: 1 DOSAGE FORM
     Route: 058
     Dates: start: 202206
  4. COSENTYX [Suspect]
     Active Substance: SECUKINUMAB
     Dosage: 1 DOSAGE FORM, QMO (K 2 PREFILLED PEN OF  COSENTYX 150 MG IN JUNE FOLLOWED BY 1 PREFILLED PEN OF COS
     Route: 065
     Dates: start: 202207, end: 20220907
  5. COSENTYX [Suspect]
     Active Substance: SECUKINUMAB
     Dosage: UNK
     Route: 058
     Dates: start: 20220907
  6. METHOTREXATE [Suspect]
     Active Substance: METHOTREXATE
     Indication: Product used for unknown indication
     Dosage: UNK
     Route: 065
  7. METHOTREXATE [Suspect]
     Active Substance: METHOTREXATE
     Indication: Product used for unknown indication
     Dosage: UNK
     Route: 065

REACTIONS (9)
  - Inflammatory bowel disease [Recovering/Resolving]
  - Limb injury [Recovering/Resolving]
  - Hypersensitivity [Recovering/Resolving]
  - White blood cell count decreased [Not Recovered/Not Resolved]
  - Bone disorder [Not Recovered/Not Resolved]
  - Skin disorder [Not Recovered/Not Resolved]
  - Rebound psoriasis [Not Recovered/Not Resolved]
  - Symptom recurrence [Recovering/Resolving]
  - Anaemia [Not Recovered/Not Resolved]

NARRATIVE: CASE EVENT DATE: 20190101
